FAERS Safety Report 6176464-2 (Version None)
Quarter: 2009Q2

REPORT INFORMATION
  Report Type: 
  Country: None (occurrence: None)
  Receive Date: 20090501
  Receipt Date: 20080917
  Transmission Date: 20091009
  Serious: Yes (Hospitalization, Other)
  Sender: FDA-Public Use
  Company Number: DE-ALEXION-A200800219

PATIENT

DRUGS (7)
  1. SOLIRIS [Suspect]
     Indication: PAROXYSMAL NOCTURNAL HAEMOGLOBINURIA
     Dosage: 900 MG, SINGLE
     Route: 042
     Dates: start: 20080725, end: 20080725
  2. SOLIRIS [Suspect]
     Dosage: 900 MG, SINGLE
     Route: 042
     Dates: start: 20080808, end: 20080808
  3. COTRIM FORTE EU RHO [Concomitant]
     Indication: PROPHYLAXIS
     Dosage: 960 MG, QD
     Route: 048
  4. PANTOZOL /01263202/ [Concomitant]
     Indication: PROPHYLAXIS
     Dosage: 40 MG, QD
     Route: 048
  5. NOVOTHYRAL [Concomitant]
     Indication: THYROID HORMONE REPLACEMENT THERAPY
     Dosage: 75 UG, QD
     Route: 048
  6. SPIRIVA SALBUTAMOL [Concomitant]
     Indication: CHRONIC OBSTRUCTIVE PULMONARY DISEASE
     Dosage: 22.5 UG, UNK
     Route: 048
  7. PREDNISOLONE [Concomitant]
     Indication: PROPHYLAXIS
     Dosage: 10 MG, UNK
     Route: 048

REACTIONS (4)
  - ACUTE MYELOID LEUKAEMIA [None]
  - CEREBROVASCULAR ACCIDENT [None]
  - DEEP VEIN THROMBOSIS [None]
  - THROMBOCYTHAEMIA [None]
